FAERS Safety Report 17032766 (Version 1)
Quarter: 2019Q4

REPORT INFORMATION
  Report Type: Spontaneous
  Country: US (occurrence: US)
  Receive Date: 20191114
  Receipt Date: 20191114
  Transmission Date: 20200122
  Serious: No
  Sender: FDA-Public Use
  Company Number: US-BAYER-2019-205564

PATIENT
  Age: 76 Year
  Sex: Female
  Weight: 84 kg

DRUGS (2)
  1. ALEVE [Suspect]
     Active Substance: NAPROXEN SODIUM
     Route: 065
  2. NAPROSYN [Concomitant]
     Active Substance: NAPROXEN

REACTIONS (1)
  - Drug hypersensitivity [Unknown]
